FAERS Safety Report 8576124-4 (Version None)
Quarter: 2012Q3

REPORT INFORMATION
  Report Type: 
  Country: None (occurrence: None)
  Receive Date: 20120807
  Receipt Date: 20120727
  Transmission Date: 20120928
  Serious: Yes (Hospitalization, Other)
  Sender: FDA-Public Use
  Company Number: US-CELGENEUS-163-20785-12080069

PATIENT
  Sex: Male
  Weight: 71.7 kg

DRUGS (1)
  1. THALOMID [Suspect]
     Indication: MULTIPLE MYELOMA
     Dosage: 10 MILLIGRAM
     Route: 048
     Dates: start: 20120625

REACTIONS (6)
  - CARDIAC DISORDER [None]
  - ANXIETY [None]
  - TREATMENT NONCOMPLIANCE [None]
  - OXYGEN SATURATION DECREASED [None]
  - OEDEMA PERIPHERAL [None]
  - PLATELET COUNT DECREASED [None]
